FAERS Safety Report 8012386-X (Version None)
Quarter: 2011Q4

REPORT INFORMATION
  Report Type: 
  Country: None (occurrence: None)
  Receive Date: 20111228
  Receipt Date: 20111222
  Transmission Date: 20120403
  Serious: Yes (Hospitalization)
  Sender: FDA-Public Use
  Company Number: US-ABBOTT-11P-163-0885965-00

PATIENT
  Sex: Female
  Weight: 45.854 kg

DRUGS (1)
  1. HUMIRA [Suspect]
     Indication: RHEUMATOID ARTHRITIS
     Dates: start: 20110531

REACTIONS (4)
  - DRUG INEFFECTIVE [None]
  - PAIN [None]
  - NODULE [None]
  - GASTRIC DISORDER [None]
